FAERS Safety Report 8417102-5 (Version None)
Quarter: 2012Q2

REPORT INFORMATION
  Report Type: 
  Country: None (occurrence: None)
  Receive Date: 20120606
  Receipt Date: 20120524
  Transmission Date: 20120825
  Serious: Yes (Other)
  Sender: FDA-Public Use
  Company Number: GB-UCBSA-058558

PATIENT
  Age: 7 Year
  Sex: Male
  Weight: 22 kg

DRUGS (1)
  1. METHYLPHENIDATE [Suspect]
     Indication: ATTENTION DEFICIT/HYPERACTIVITY DISORDER
     Route: 048
     Dates: start: 20120312, end: 20120314

REACTIONS (6)
  - ORAL DISORDER [None]
  - FEELING HOT [None]
  - RASH MACULAR [None]
  - HYPERSENSITIVITY [None]
  - HYPERHIDROSIS [None]
  - URTICARIA [None]
